FAERS Safety Report 10055292 (Version 3)
Quarter: 2014Q2

REPORT INFORMATION
  Report Type: Report from Study
  Country: FR (occurrence: FR)
  Receive Date: 20140403
  Receipt Date: 20140526
  Transmission Date: 20141212
  Serious: Yes (Hospitalization, Other)
  Sender: FDA-Public Use
  Company Number: FR-ROCHE-1374759

PATIENT
  Sex: Male

DRUGS (6)
  1. RITUXIMAB [Suspect]
     Indication: CHRONIC LYMPHOCYTIC LEUKAEMIA
     Dosage: 2 COURSES, LAST MAINTAINANCE DOSE RECEIEVD : 910 MG/M2
     Route: 042
     Dates: start: 20120323, end: 20120522
  2. RITUXIMAB [Suspect]
     Dosage: 500 MG/M2 EVERY 8 WEEKS EVERY 2 YEARS
     Route: 042
     Dates: start: 20110912, end: 20111205
  3. FLUDARABINE [Suspect]
     Indication: CHRONIC LYMPHOCYTIC LEUKAEMIA
     Route: 065
     Dates: start: 20110912, end: 20111205
  4. CYCLOPHOSPHAMIDE [Suspect]
     Indication: CHRONIC LYMPHOCYTIC LEUKAEMIA
     Route: 065
     Dates: start: 20110912, end: 20111205
  5. ZELITREX [Concomitant]
     Dosage: 1/G
     Route: 065
  6. PENTACARINAT INFUSION [Concomitant]

REACTIONS (1)
  - Adenocarcinoma of colon [Unknown]
